FAERS Safety Report 7935845-4 (Version None)
Quarter: 2011Q4

REPORT INFORMATION
  Report Type: 
  Country: None (occurrence: None)
  Receive Date: 20111123
  Receipt Date: 20111116
  Transmission Date: 20120403
  Serious: Yes (Other)
  Sender: FDA-Public Use
  Company Number: US-BAYER-2011-096367

PATIENT
  Age: 77 Year
  Sex: Male

DRUGS (4)
  1. NEXAVAR [Suspect]
     Indication: RENAL CELL CARCINOMA
     Dosage: 200 MG, BID
     Dates: start: 20110901, end: 20111001
  2. COUMADIN [Concomitant]
     Dosage: UNK
  3. NEXAVAR [Suspect]
     Dosage: 200 MG, BID
     Dates: start: 20111101
  4. NEXAVAR [Suspect]
     Dosage: 400 MG, BID
     Dates: start: 20111001, end: 20111101

REACTIONS (5)
  - FATIGUE [None]
  - FREQUENT BOWEL MOVEMENTS [None]
  - GLOSSODYNIA [None]
  - APHAGIA [None]
  - SWOLLEN TONGUE [None]
